FAERS Safety Report 14293451 (Version 1)
Quarter: 2017Q4

REPORT INFORMATION
  Report Type: Spontaneous
  Country: UA (occurrence: UA)
  Receive Date: 20171215
  Receipt Date: 20171215
  Transmission Date: 20180321
  Serious: Yes (Other)
  Sender: FDA-Public Use
  Company Number: UA-009507513-1712UKR005624

PATIENT
  Age: 66 Year
  Sex: Male

DRUGS (15)
  1. DEXASONE [Concomitant]
     Active Substance: DEXAMETHASONE
     Dosage: 4 MG, UNK
     Route: 030
     Dates: start: 201610
  2. TEMODAL [Suspect]
     Active Substance: TEMOZOLOMIDE
     Dosage: 400 MG, A DAY
     Route: 048
     Dates: start: 20161115, end: 20161119
  3. TEMODAL [Suspect]
     Active Substance: TEMOZOLOMIDE
     Dosage: 300 MG A DAY
     Route: 048
     Dates: start: 20170307, end: 20170311
  4. DENOSUMAB [Concomitant]
     Active Substance: DENOSUMAB
     Dosage: 120 MG, ONCE
     Dates: start: 20170121, end: 20170121
  5. TEMODAL [Suspect]
     Active Substance: TEMOZOLOMIDE
     Dosage: 300 MG A DAY
     Route: 048
     Dates: start: 20170110, end: 20170114
  6. DENOSUMAB [Concomitant]
     Active Substance: DENOSUMAB
     Dosage: 120 MG, ONCE
     Dates: start: 20161029, end: 20161029
  7. DENOSUMAB [Concomitant]
     Active Substance: DENOSUMAB
     Dosage: 120 MG, ONCE
     Dates: start: 20161224, end: 20161224
  8. CALCIUM D3 NYCOMED [Concomitant]
     Dosage: 1 TABLET 3 TIMES DAILY
     Route: 048
     Dates: start: 201610
  9. HEPA-MERZ [Concomitant]
     Dosage: 5 G, TID
     Route: 048
     Dates: start: 201610
  10. TEMODAL [Suspect]
     Active Substance: TEMOZOLOMIDE
     Dosage: 300 MG A DAY
     Route: 048
     Dates: start: 20161018, end: 20161022
  11. TEMODAL [Suspect]
     Active Substance: TEMOZOLOMIDE
     Dosage: 300 MG A DAY
     Route: 048
     Dates: start: 20170207, end: 20170211
  12. DENOSUMAB [Concomitant]
     Active Substance: DENOSUMAB
     Dosage: 120 MG, ONCE
     Dates: start: 20161028, end: 20161028
  13. DENOSUMAB [Concomitant]
     Active Substance: DENOSUMAB
     Dosage: 120 MG, ONCE
     Dates: start: 20161126, end: 20161126
  14. DENOSUMAB [Concomitant]
     Active Substance: DENOSUMAB
     Dosage: 120 MG, ONCE
     Dates: start: 20161126, end: 20161126
  15. TEMODAL [Suspect]
     Active Substance: TEMOZOLOMIDE
     Dosage: 200 MG, A DAY
     Route: 048
     Dates: start: 20161213, end: 20161217

REACTIONS (26)
  - Osteochondrosis [Unknown]
  - Gallbladder enlargement [Unknown]
  - Peripheral arterial occlusive disease [Unknown]
  - Aortic arteriosclerosis [Unknown]
  - Left ventricular hypertrophy [Unknown]
  - Cholecystitis chronic [Unknown]
  - Rib fracture [Unknown]
  - Aortic calcification [Unknown]
  - Left atrial dilatation [Unknown]
  - Haemangioma of liver [Unknown]
  - Spinal osteoarthritis [Unknown]
  - Amnesia [Unknown]
  - Encephalomalacia [Unknown]
  - Supraventricular extrasystoles [Unknown]
  - Aortic dilatation [Unknown]
  - Lipoma [Unknown]
  - QRS axis abnormal [Unknown]
  - Right ventricular dilatation [Unknown]
  - Lymphostasis [Unknown]
  - Cerebral congestion [Unknown]
  - Hepatosplenomegaly [Unknown]
  - Hepatic steatosis [Unknown]
  - Nephroptosis [Unknown]
  - Humerus fracture [Unknown]
  - Loss of consciousness [Unknown]
  - Pulmonary fibrosis [Unknown]

NARRATIVE: CASE EVENT DATE: 201610
